FAERS Safety Report 6369020-4 (Version None)
Quarter: 2009Q3

REPORT INFORMATION
  Report Type: 
  Country: None (occurrence: None)
  Receive Date: 20090916
  Receipt Date: 20090908
  Transmission Date: 20100115
  Serious: Yes (Hospitalization)
  Sender: FDA-Public Use
  Company Number: ADR19522009

PATIENT
  Age: 57 Year
  Sex: Female

DRUGS (2)
  1. SERTRALINE HCL [Suspect]
     Indication: DEPRESSION
     Dosage: 100MG + 50MG ORAL
     Route: 048
  2. LANSOPRAZOLE [Concomitant]

REACTIONS (1)
  - ATRIOVENTRICULAR BLOCK FIRST DEGREE [None]
